FAERS Safety Report 12281252 (Version 1)
Quarter: 2016Q2

REPORT INFORMATION
  Report Type: Spontaneous
  Country: US (occurrence: None)
  Receive Date: 20160418
  Receipt Date: 20160418
  Transmission Date: 20160815
  Serious: Yes (Other)
  Sender: FDA-Public Use
  Company Number: None

PATIENT
  Age: 29 Year
  Sex: Female
  Weight: 61.24 kg

DRUGS (6)
  1. GABAPENTIN. [Suspect]
     Active Substance: GABAPENTIN
     Indication: EPILEPSY
     Route: 048
     Dates: start: 20150501
  2. TOOPAMAX [Concomitant]
  3. KOR-CON [Concomitant]
  4. OXCARBAZEPINE. [Concomitant]
     Active Substance: OXCARBAZEPINE
  5. IRON PILL [Concomitant]
     Active Substance: IRON
  6. GABAPENTIN. [Suspect]
     Active Substance: GABAPENTIN
     Indication: GENERALISED TONIC-CLONIC SEIZURE
     Route: 048
     Dates: start: 20150501

REACTIONS (4)
  - Visual impairment [None]
  - Hypoaesthesia [None]
  - Strabismus [None]
  - Seizure [None]

NARRATIVE: CASE EVENT DATE: 20160410
